FAERS Safety Report 19002227 (Version 1)
Quarter: 2021Q1

REPORT INFORMATION
  Report Type: Spontaneous
  Country: US (occurrence: US)
  Receive Date: 20210312
  Receipt Date: 20210312
  Transmission Date: 20210420
  Serious: No
  Sender: FDA-Public Use
  Company Number: US-BAUSCH-BL-2021-004732

PATIENT
  Sex: Male

DRUGS (2)
  1. PENICILLAMINE [Suspect]
     Active Substance: PENICILLAMINE
     Indication: PRODUCT USED FOR UNKNOWN INDICATION
     Route: 048
  2. PENICILLAMINE [Suspect]
     Active Substance: PENICILLAMINE
     Dosage: IN MORNING
     Route: 048

REACTIONS (4)
  - Pain [Unknown]
  - Fatigue [Unknown]
  - Headache [Unknown]
  - Disturbance in attention [Unknown]
